FAERS Safety Report 5017307-X (Version None)
Quarter: 2006Q2

REPORT INFORMATION
  Report Type: 
  Country: None (occurrence: None)
  Receive Date: 20060414
  Receipt Date: 20060213
  Transmission Date: 20061013
  Serious: No
  Sender: FDA-Public Use
  Company Number: 2006SP000763

PATIENT
  Age: 59 Year
  Sex: Female
  Weight: 58.9676 kg

DRUGS (14)
  1. LUNESTA [Suspect]
     Indication: EARLY MORNING AWAKENING
     Dosage: 1 MG; PRN; ORAL
     Route: 048
     Dates: start: 20050101
  2. AMITRIPTYLINE HCL [Concomitant]
  3. CLONAZEPAM [Concomitant]
  4. TEMAZEPAM [Concomitant]
  5. AMBIEN [Concomitant]
  6. DEPAKOTE [Concomitant]
  7. OXCARBAZEPINE [Concomitant]
  8. PHENYTOIN [Concomitant]
  9. PERCOCET [Concomitant]
  10. LEVOTHYROXINE SODIUM [Concomitant]
  11. ESTROGENS [Concomitant]
  12. PROVERA [Concomitant]
  13. ASPIRIN [Concomitant]
  14. MULTIVITAMIN [Concomitant]

REACTIONS (1)
  - INSOMNIA [None]
